FAERS Safety Report 22038327 (Version 1)
Quarter: 2023Q1

REPORT INFORMATION
  Report Type: Spontaneous
  Country: US (occurrence: US)
  Receive Date: 20230227
  Receipt Date: 20230227
  Transmission Date: 20230417
  Serious: No
  Sender: FDA-Public Use
  Company Number: US-BRISTOL-MYERS SQUIBB COMPANY-2023-027937

PATIENT
  Age: 72 Year
  Sex: Female
  Weight: 93.05 kg

DRUGS (1)
  1. REVLIMID [Suspect]
     Active Substance: LENALIDOMIDE
     Indication: Plasma cell myeloma
     Dosage: DOSE : 15MG;     FREQ : 14 DAYS ON 7 DAYS OFF
     Route: 048
     Dates: start: 20220802

REACTIONS (2)
  - Dizziness [Unknown]
  - Off label use [Unknown]
